FAERS Safety Report 15795518 (Version 1)
Quarter: 2019Q1

REPORT INFORMATION
  Report Type: Spontaneous
  Country: US (occurrence: US)
  Receive Date: 20190107
  Receipt Date: 20190107
  Transmission Date: 20190417
  Serious: Yes (Hospitalization)
  Sender: FDA-Public Use
  Company Number: None

PATIENT
  Age: 67 Year
  Sex: Female

DRUGS (22)
  1. ALPRAZOLAM. [Concomitant]
     Active Substance: ALPRAZOLAM
  2. CLINDAMYCIN. [Concomitant]
     Active Substance: CLINDAMYCIN
  3. ESTRADIOL. [Concomitant]
     Active Substance: ESTRADIOL
  4. FLUTICASONE. [Concomitant]
     Active Substance: FLUTICASONE
  5. CLOBETASOL [Concomitant]
     Active Substance: CLOBETASOL
  6. MAGNESIUM [Concomitant]
     Active Substance: MAGNESIUM
  7. TARCEVA [Suspect]
     Active Substance: ERLOTINIB HYDROCHLORIDE
     Indication: LUNG NEOPLASM MALIGNANT
     Route: 048
     Dates: start: 20170616
  8. LEVOFLOXACIN. [Concomitant]
     Active Substance: LEVOFLOXACIN
  9. BENZONATE [Concomitant]
     Active Substance: BENZONATATE
  10. CITALOPRAM [Concomitant]
     Active Substance: CITALOPRAM HYDROBROMIDE
  11. CODIENE/APA [Concomitant]
  12. RANITIDINE. [Concomitant]
     Active Substance: RANITIDINE
  13. VALACYCLOVIR [Concomitant]
     Active Substance: VALACYCLOVIR HYDROCHLORIDE
  14. HYDROCO/APAP [Concomitant]
     Active Substance: ACETAMINOPHEN\HYDROCODONE
  15. ONDANSETRON [Concomitant]
     Active Substance: ONDANSETRON
  16. ZOLPIDEM [Concomitant]
     Active Substance: ZOLPIDEM\ZOLPIDEM TARTRATE
  17. PROGESTERONE. [Concomitant]
     Active Substance: PROGESTERONE
  18. VENTOLIN [Concomitant]
     Active Substance: ALBUTEROL SULFATE
  19. BACLOFEN. [Concomitant]
     Active Substance: BACLOFEN
  20. CALCIUM [Concomitant]
     Active Substance: CALCIUM
  21. GABAPENTIN. [Concomitant]
     Active Substance: GABAPENTIN
  22. OMEPRAZOLE. [Concomitant]
     Active Substance: OMEPRAZOLE

REACTIONS (1)
  - Death [None]

NARRATIVE: CASE EVENT DATE: 20181201
